FAERS Safety Report 7729525-8 (Version None)
Quarter: 2011Q3

REPORT INFORMATION
  Report Type: 
  Country: None (occurrence: None)
  Receive Date: 20110906
  Receipt Date: 20110825
  Transmission Date: 20111222
  Serious: Yes (Hospitalization)
  Sender: FDA-Public Use
  Company Number: FR-JNJFOC-2006145516

PATIENT
  Age: 17 Year
  Sex: Female

DRUGS (12)
  1. PSEUDOEPHEDRINE HCL [Suspect]
     Route: 048
  2. METRONIDAZOLE [Suspect]
     Indication: INTENTIONAL OVERDOSE
     Route: 048
     Dates: start: 20061015, end: 20061015
  3. IBUPROFEN [Suspect]
     Route: 048
  4. IBUPROFEN [Suspect]
     Indication: INTENTIONAL OVERDOSE
     Route: 048
     Dates: start: 20061015, end: 20061015
  5. DICLOFENAC SODIUM [Suspect]
     Indication: INTENTIONAL OVERDOSE
     Route: 048
     Dates: start: 20061015, end: 20061015
  6. PSEUDOEPHEDRINE HCL [Suspect]
     Indication: INTENTIONAL OVERDOSE
     Route: 048
     Dates: start: 20061015, end: 20061015
  7. XANAX [Suspect]
     Indication: INTENTIONAL OVERDOSE
     Dosage: DAILY DOSE QTY: 2.5 G
     Route: 048
     Dates: start: 20061015, end: 20061015
  8. ACECLOFENAC [Suspect]
     Indication: INTENTIONAL OVERDOSE
     Route: 048
     Dates: start: 20061015, end: 20061015
  9. VOLTAREN [Suspect]
     Indication: INTENTIONAL OVERDOSE
     Dates: start: 20061015, end: 20061015
  10. ACETAMINOPHEN [Suspect]
     Indication: INTENTIONAL OVERDOSE
     Route: 048
     Dates: start: 20061015, end: 20061015
  11. ACETAMINOPHEN [Suspect]
     Route: 048
  12. CHLOROQUINE PHOSPHATE [Suspect]
     Indication: INTENTIONAL OVERDOSE
     Route: 048
     Dates: start: 20061015, end: 20061015

REACTIONS (6)
  - ASTHENIA [None]
  - PALLOR [None]
  - DIARRHOEA [None]
  - VOMITING [None]
  - NAUSEA [None]
  - INTENTIONAL OVERDOSE [None]
